FAERS Safety Report 18656357 (Version 1)
Quarter: 2020Q4

REPORT INFORMATION
  Report Type: Spontaneous
  Country: GB (occurrence: GB)
  Receive Date: 20201223
  Receipt Date: 20201223
  Transmission Date: 20210114
  Serious: Yes (Hospitalization)
  Sender: FDA-Public Use
  Company Number: GB-MYLANLABS-2020M1050919

PATIENT
  Age: 43 Year
  Sex: Male

DRUGS (1)
  1. CLOZARIL [Suspect]
     Active Substance: CLOZAPINE
     Indication: SCHIZOPHRENIA
     Dosage: UNK
     Route: 048
     Dates: start: 20170516

REACTIONS (4)
  - Differential white blood cell count abnormal [Not Recovered/Not Resolved]
  - Pyrexia [Unknown]
  - Leukocytosis [Not Recovered/Not Resolved]
  - Neutrophilia [Unknown]

NARRATIVE: CASE EVENT DATE: 20200518
